FAERS Safety Report 11054581 (Version 1)
Quarter: 2015Q2

REPORT INFORMATION
  Report Type: Spontaneous
  Country: US (occurrence: None)
  Receive Date: 20150421
  Receipt Date: 20150421
  Transmission Date: 20150821
  Serious: No
  Sender: FDA-Public Use
  Company Number: None

PATIENT
  Age: 71 Year
  Sex: Female
  Weight: 65.77 kg

DRUGS (16)
  1. LOTEMAX [Suspect]
     Active Substance: LOTEPREDNOL ETABONATE
     Indication: OCULAR HYPERAEMIA
     Dosage: .05 % 1 DROP 4XDAILY 4X DAILY DROPPED IN EYE
     Route: 047
     Dates: start: 20150205, end: 20150218
  2. LOTEMAX [Suspect]
     Active Substance: LOTEPREDNOL ETABONATE
     Indication: ERYTHEMA OF EYELID
     Dosage: .05 % 1 DROP 4XDAILY 4X DAILY DROPPED IN EYE
     Route: 047
     Dates: start: 20150205, end: 20150218
  3. LOTEMAX [Suspect]
     Active Substance: LOTEPREDNOL ETABONATE
     Indication: EYELID OEDEMA
     Dosage: .05 % 1 DROP 4XDAILY 4X DAILY DROPPED IN EYE
     Route: 047
     Dates: start: 20150205, end: 20150218
  4. CALCIUM [Concomitant]
     Active Substance: CALCIUM
  5. LISINOPRIL. [Suspect]
     Active Substance: LISINOPRIL
  6. LOTEMAX [Suspect]
     Active Substance: LOTEPREDNOL ETABONATE
     Dosage: .05 % 1 DROP 4XDAILY 4X DAILY DROPPED IN EYE
     Route: 047
     Dates: start: 20150205, end: 20150218
  7. SIMVASTATIN. [Suspect]
     Active Substance: SIMVASTATIN
  8. MANGANESE [Concomitant]
     Active Substance: MANGANESE\MANGANESE CHLORIDE
  9. LOTEMAX [Suspect]
     Active Substance: LOTEPREDNOL ETABONATE
     Indication: EYE SWELLING
     Dosage: .05 % 1 DROP 4XDAILY 4X DAILY DROPPED IN EYE
     Route: 047
     Dates: start: 20150205, end: 20150218
  10. LOTEMAX [Suspect]
     Active Substance: LOTEPREDNOL ETABONATE
     Indication: EYELID IRRITATION
     Dosage: .05 % 1 DROP 4XDAILY 4X DAILY DROPPED IN EYE
     Route: 047
     Dates: start: 20150205, end: 20150218
  11. MAGNESIUM [Concomitant]
     Active Substance: MAGNESIUM
  12. POTASSIUM [Concomitant]
     Active Substance: POTASSIUM
  13. PROBIOTICS [Concomitant]
     Active Substance: PROBIOTICS NOS
  14. B^S [Concomitant]
  15. LOTEMAX [Suspect]
     Active Substance: LOTEPREDNOL ETABONATE
     Indication: EYE IRRITATION
     Dosage: .05 % 1 DROP 4XDAILY 4X DAILY DROPPED IN EYE
     Route: 047
     Dates: start: 20150205, end: 20150218
  16. VIT. D [Concomitant]

REACTIONS (5)
  - Head discomfort [None]
  - Instillation site pain [None]
  - Nausea [None]
  - Headache [None]
  - Ocular discomfort [None]

NARRATIVE: CASE EVENT DATE: 20150205
